FAERS Safety Report 4553551-3 (Version None)
Quarter: 2004Q4

REPORT INFORMATION
  Report Type: 
  Country: None (occurrence: None)
  Receive Date: 20041227
  Receipt Date: 20040901
  Transmission Date: 20050328
  Serious: No
  Sender: FDA-Public Use
  Company Number: 04P-163-0272086-00

PATIENT
  Age: 77 Year
  Sex: Female
  Weight: 68.9467 kg

DRUGS (13)
  1. HUMIRA [Suspect]
     Indication: RHEUMATOID ARTHRITIS
     Dosage: 40 MG, 1 IN 2 WK, SUBCUTANEOUS
     Route: 058
     Dates: start: 20030101
  2. LEFLUNOMIDE [Concomitant]
  3. METHOTREXATE [Concomitant]
  4. CALCIUM GLUCONATE [Concomitant]
  5. CYANOCOBALAMIN [Concomitant]
  6. THYROID TAB [Concomitant]
  7. ESTROPIPATE [Concomitant]
  8. PREDNISONE [Concomitant]
  9. SYNALOGS-DC [Concomitant]
  10. LANSOPRAZOLE [Concomitant]
  11. NIFEDIPINE [Concomitant]
  12. ALPRAZOLAM [Concomitant]
  13. ARTIFICIAL TEARS [Concomitant]

REACTIONS (3)
  - JOINT SWELLING [None]
  - OEDEMA PERIPHERAL [None]
  - SKIN ULCER [None]
